FAERS Safety Report 10015326 (Version 1)
Quarter: 2014Q1

REPORT INFORMATION
  Report Type: Spontaneous
  Country: JP (occurrence: JP)
  Receive Date: 20140317
  Receipt Date: 20140317
  Transmission Date: 20141002
  Serious: Yes (Life-Threatening, Other)
  Sender: FDA-Public Use
  Company Number: JP-ASTRAZENECA-2014SE18345

PATIENT
  Age: 36 Year
  Sex: Male
  Weight: 80 kg

DRUGS (5)
  1. SEROQUEL [Suspect]
     Route: 048
     Dates: start: 20140306, end: 20140306
  2. REGNITE [Suspect]
     Route: 048
     Dates: start: 20140306, end: 20140306
  3. ANTIEPILEPTICS [Concomitant]
     Route: 048
     Dates: start: 20140306, end: 20140306
  4. ANTIDEPRESSANTS [Concomitant]
     Route: 048
     Dates: start: 20140306, end: 20140306
  5. HYPNOTICS AND SEDATIVES, ANTIANXIETICS [Concomitant]
     Route: 048
     Dates: start: 20140306, end: 20140306

REACTIONS (4)
  - Intentional overdose [Unknown]
  - Suicide attempt [Unknown]
  - Altered state of consciousness [Unknown]
  - Tachycardia [Unknown]
